FAERS Safety Report 4909302-3 (Version None)
Quarter: 2006Q1

REPORT INFORMATION
  Report Type: 
  Country: None (occurrence: None)
  Receive Date: 20060213
  Receipt Date: 20060208
  Transmission Date: 20060701
  Serious: Yes (Hospitalization)
  Sender: FDA-Public Use
  Company Number: SE-AVENTIS-200611202GDDC

PATIENT
  Age: 49 Year
  Sex: Male

DRUGS (2)
  1. FLAGYL [Suspect]
     Indication: INFECTION
     Route: 048
     Dates: start: 20051213, end: 20051214
  2. CIPROXIN [Suspect]
     Indication: INFECTION
     Route: 048
     Dates: start: 20051213, end: 20051214

REACTIONS (3)
  - DELUSION [None]
  - DISORIENTATION [None]
  - PSYCHOTIC DISORDER [None]
